FAERS Safety Report 8757357 (Version 1)
Quarter: 2012Q4

REPORT INFORMATION
  Report Type: Report from Study
  Country: GB (occurrence: GB)
  Receive Date: 20120828
  Receipt Date: 20120828
  Transmission Date: 20130627
  Serious: Yes (Death)
  Sender: FDA-Public Use
  Company Number: GB-MILLENNIUM PHARMACEUTICALS, INC.-2012-06007

PATIENT

DRUGS (2)
  1. VELCADE [Suspect]
     Indication: MESOTHELIOMA MALIGNANT
     Dosage: 1.6 UNK, UNK
  2. VELCADE [Suspect]
     Dosage: 1.3 mg/m2, Cyclic

REACTIONS (1)
  - Death [Fatal]
